FAERS Safety Report 7627499-1 (Version None)
Quarter: 2011Q3

REPORT INFORMATION
  Report Type: 
  Country: None (occurrence: None)
  Receive Date: 20110721
  Receipt Date: 20110715
  Transmission Date: 20111222
  Serious: Yes (Hospitalization)
  Sender: FDA-Public Use
  Company Number: US-GILEAD-2011-0038848

PATIENT
  Sex: Male

DRUGS (1)
  1. LETAIRIS [Suspect]
     Indication: PULMONARY HYPERTENSION
     Route: 048
     Dates: start: 20081211

REACTIONS (5)
  - PYREXIA [None]
  - CHILLS [None]
  - STAPHYLOCOCCAL INFECTION [None]
  - NEPHROPATHY [None]
  - DEVICE RELATED INFECTION [None]
